FAERS Safety Report 25294166 (Version 1)
Quarter: 2025Q2

REPORT INFORMATION
  Report Type: Spontaneous
  Country: US (occurrence: US)
  Receive Date: 20250511
  Receipt Date: 20250511
  Transmission Date: 20250717
  Serious: No
  Sender: SANOFI AVENTIS
  Company Number: US-SA-2025SA125879

PATIENT
  Age: 19 Year
  Sex: Male

DRUGS (4)
  1. DUPIXENT [Suspect]
     Active Substance: DUPILUMAB
     Indication: Ichthyosis
     Route: 058
     Dates: start: 20250204, end: 20250204
  2. DUPIXENT [Suspect]
     Active Substance: DUPILUMAB
     Indication: Dupuytren^s contracture
     Dosage: 300MG,QOW
     Route: 058
     Dates: start: 202502
  3. DUPIXENT [Suspect]
     Active Substance: DUPILUMAB
     Indication: Psoriasis
  4. TALTZ [Concomitant]
     Active Substance: IXEKIZUMAB

REACTIONS (1)
  - Product use in unapproved indication [Unknown]

NARRATIVE: CASE EVENT DATE: 20250204
